FAERS Safety Report 7415653-3 (Version None)
Quarter: 2011Q2

REPORT INFORMATION
  Report Type: 
  Country: None (occurrence: None)
  Receive Date: 20110406
  Receipt Date: 20110330
  Transmission Date: 20111010
  Serious: No
  Sender: FDA-Public Use
  Company Number: 20108044

PATIENT
  Sex: Female

DRUGS (1)
  1. LIORESAL [Suspect]
     Indication: MUSCLE SPASTICITY
     Dosage: 3.12 MCG, DAILY, INTRATHECAL
     Route: 037

REACTIONS (3)
  - SOMNOLENCE [None]
  - UNRESPONSIVE TO STIMULI [None]
  - DYSTONIA [None]
